FAERS Safety Report 10620677 (Version 1)
Quarter: 2014Q4

REPORT INFORMATION
  Report Type: Spontaneous
  Country: BE (occurrence: BE)
  Receive Date: 20141202
  Receipt Date: 20141202
  Transmission Date: 20150529
  Serious: Yes (Other)
  Sender: FDA-Public Use
  Company Number: PHHY2014BE156591

PATIENT
  Age: 70 Year
  Sex: Female

DRUGS (3)
  1. ZOLEDRONATE [Suspect]
     Active Substance: ZOLEDRONIC ACID
     Indication: METASTASES TO BONE
     Dosage: 4 MG, QW4
     Route: 042
  2. ISO-BETADINE [Concomitant]
     Active Substance: POVIDONE-IODINE
     Indication: PROPHYLAXIS
     Route: 065
  3. AMOXICILLIN CLAVULANIC ACID [Concomitant]
     Active Substance: AMOXICILLIN\CLAVULANIC ACID
     Indication: PROPHYLAXIS
     Dosage: 1500 MG, QD
     Route: 065

REACTIONS (3)
  - Pain in jaw [Unknown]
  - Osteonecrosis of jaw [Recovered/Resolved]
  - Dysaesthesia [Unknown]
